FAERS Safety Report 8396619-6 (Version None)
Quarter: 2012Q2

REPORT INFORMATION
  Report Type: 
  Country: None (occurrence: None)
  Receive Date: 20120530
  Receipt Date: 20120519
  Transmission Date: 20120825
  Serious: Yes (Other)
  Sender: FDA-Public Use
  Company Number: BR-JNJFOC-20120516939

PATIENT
  Sex: Male
  Weight: 11.6 kg

DRUGS (2)
  1. ACETAMINOPHEN [Suspect]
     Indication: PYREXIA
     Route: 048
     Dates: start: 20120519, end: 20120520
  2. ACETAMINOPHEN [Suspect]
     Route: 048

REACTIONS (3)
  - HYPOTHERMIA [None]
  - VOMITING [None]
  - INCORRECT DOSE ADMINISTERED [None]
